FAERS Safety Report 5655362-4 (Version None)
Quarter: 2008Q1

REPORT INFORMATION
  Report Type: 
  Country: None (occurrence: None)
  Receive Date: 20080307
  Receipt Date: 20080305
  Transmission Date: 20080703
  Serious: Yes (Hospitalization)
  Sender: FDA-Public Use
  Company Number: AU-MERCK-0803AUS00049

PATIENT
  Age: 83 Year
  Sex: Male

DRUGS (2)
  1. FOSAMAX [Suspect]
     Indication: OSTEOPOROSIS
     Route: 048
     Dates: start: 20040101, end: 20071101
  2. FOSAMAX [Suspect]
     Route: 048
     Dates: start: 20070101

REACTIONS (5)
  - BALANCE DISORDER [None]
  - FALL [None]
  - MEMORY IMPAIRMENT [None]
  - SKULL FRACTURE [None]
  - SUBDURAL HAEMORRHAGE [None]
